FAERS Safety Report 5777256-6 (Version None)
Quarter: 2008Q2

REPORT INFORMATION
  Report Type: 
  Country: None (occurrence: None)
  Receive Date: 20080618
  Receipt Date: 20080609
  Transmission Date: 20081010
  Serious: Yes (Hospitalization)
  Sender: FDA-Public Use
  Company Number: US-ELI_LILLY_AND_COMPANY-US200806002153

PATIENT
  Sex: Female

DRUGS (2)
  1. HUMALOG MIX 50/50 [Suspect]
     Dates: start: 20070101
  2. HUMULIN 70/30 [Suspect]

REACTIONS (1)
  - INTESTINAL OBSTRUCTION [None]
